FAERS Safety Report 5030488-7 (Version None)
Quarter: 2006Q2

REPORT INFORMATION
  Report Type: 
  Country: None (occurrence: None)
  Receive Date: 20060615
  Receipt Date: 20060608
  Transmission Date: 20061013
  Serious: Yes (Other)
  Sender: FDA-Public Use
  Company Number: 2006070130

PATIENT
  Age: 46 Year
  Sex: Female

DRUGS (1)
  1. ROGAINE [Suspect]
     Dosage: 1 ML TWICE DAILY, TOPICAL
     Route: 061
     Dates: start: 20051001, end: 20060401

REACTIONS (3)
  - AMENORRHOEA [None]
  - HYPERTRICHOSIS [None]
  - THYROID NEOPLASM [None]
